FAERS Safety Report 16409241 (Version 1)
Quarter: 2019Q2

REPORT INFORMATION
  Report Type: Spontaneous
  Country: US (occurrence: US)
  Receive Date: 20190610
  Receipt Date: 20190610
  Transmission Date: 20190711
  Serious: Yes (Hospitalization)
  Sender: FDA-Public Use
  Company Number: US-US WORLDMEDS, LLC-USW201905-001061

PATIENT
  Age: 57 Year
  Sex: Female

DRUGS (1)
  1. CORGARD [Suspect]
     Active Substance: NADOLOL

REACTIONS (2)
  - Seizure [Unknown]
  - Hypertension [Unknown]
